FAERS Safety Report 7771375-0 (Version None)
Quarter: 2011Q3

REPORT INFORMATION
  Report Type: 
  Country: None (occurrence: None)
  Receive Date: 20110922
  Receipt Date: 20110516
  Transmission Date: 20111222
  Serious: No
  Sender: FDA-Public Use
  Company Number: US-ASTRAZENECA-2011SE01398

PATIENT
  Age: 44 Year
  Sex: Male

DRUGS (1)
  1. SEROQUEL [Suspect]
     Route: 048

REACTIONS (7)
  - FATIGUE [None]
  - IRRITABILITY [None]
  - DRUG WITHDRAWAL SYNDROME [None]
  - HEADACHE [None]
  - PAIN [None]
  - DRUG DOSE OMISSION [None]
  - HANGOVER [None]
